FAERS Safety Report 15296212 (Version 1)
Quarter: 2018Q3

REPORT INFORMATION
  Report Type: Spontaneous
  Country: US (occurrence: US)
  Receive Date: 20180807
  Receipt Date: 20180807
  Transmission Date: 20181010
  Serious: No
  Sender: FDA-Public Use
  Company Number: None

PATIENT
  Age: 80 Year
  Sex: Female
  Weight: 58.97 kg

DRUGS (4)
  1. ELIQUIS [Suspect]
     Active Substance: APIXABAN
     Indication: ATRIAL FIBRILLATION
     Dosage: ?          QUANTITY:1 DF DOSAGE FORM;?
     Route: 048
     Dates: start: 201712, end: 20180702
  2. OCTAVITE [Concomitant]
  3. VITAMIN D [Concomitant]
     Active Substance: CHOLECALCIFEROL
  4. XARELTO [Concomitant]
     Active Substance: RIVAROXABAN

REACTIONS (1)
  - Alopecia [None]
